FAERS Safety Report 9168898 (Version 1)
Quarter: 2013Q1

REPORT INFORMATION
  Report Type: Spontaneous
  Country: US (occurrence: None)
  Receive Date: 20130314
  Receipt Date: 20130314
  Transmission Date: 20140127
  Serious: Yes (Hospitalization)
  Sender: FDA-Public Use
  Company Number: None

PATIENT
  Age: 38 Year
  Sex: Female
  Weight: 65.77 kg

DRUGS (1)
  1. MACROBID [Suspect]
     Indication: URINARY TRACT INFECTION
     Route: 048
     Dates: start: 20120820, end: 20120822

REACTIONS (7)
  - Drug hypersensitivity [None]
  - Blood pressure increased [None]
  - Epistaxis [None]
  - Dysarthria [None]
  - Hypoaesthesia [None]
  - Headache [None]
  - Headache [None]
